FAERS Safety Report 16816138 (Version 1)
Quarter: 2019Q3

REPORT INFORMATION
  Report Type: Spontaneous
  Country: US (occurrence: US)
  Receive Date: 20190917
  Receipt Date: 20190917
  Transmission Date: 20191005
  Serious: No
  Sender: FDA-Public Use
  Company Number: US-ALLERGAN-1920531US

PATIENT
  Sex: Female

DRUGS (1)
  1. CONSTELLA [Suspect]
     Active Substance: LINACLOTIDE
     Indication: CONSTIPATION
     Dosage: 145 ?G
     Route: 065

REACTIONS (4)
  - Diarrhoea [Recovered/Resolved]
  - Feeling abnormal [Recovered/Resolved]
  - Malaise [Recovered/Resolved]
  - Abdominal pain upper [Recovered/Resolved]
